FAERS Safety Report 6918055-9 (Version None)
Quarter: 2010Q3

REPORT INFORMATION
  Report Type: 
  Country: None (occurrence: None)
  Receive Date: 20100810
  Receipt Date: 20091112
  Transmission Date: 20110219
  Serious: Yes (Other)
  Sender: FDA-Public Use
  Company Number: US-PFIZER INC-2009277249

PATIENT
  Age: 83 Year
  Sex: Female

DRUGS (1)
  1. TOVIAZ [Suspect]

REACTIONS (2)
  - DYSPNOEA [None]
  - PULMONARY ARTERIAL HYPERTENSION [None]
